FAERS Safety Report 5264115-0 (Version None)
Quarter: 2007Q1

REPORT INFORMATION
  Report Type: 
  Country: None (occurrence: None)
  Receive Date: 20070313
  Receipt Date: 20070305
  Transmission Date: 20070707
  Serious: Yes (Disabling)
  Sender: FDA-Public Use
  Company Number: PT-BRISTOL-MYERS SQUIBB COMPANY-13708938

PATIENT
  Age: 73 Year
  Sex: Female

DRUGS (5)
  1. RISIDON [Interacting]
     Indication: DIABETES MELLITUS
     Route: 048
     Dates: start: 20060201
  2. GLIMEPIRIDE [Interacting]
     Indication: DIABETES MELLITUS
     Route: 048
     Dates: start: 20060201
  3. ROSIGLITAZONE [Suspect]
     Indication: HYPERGLYCAEMIA
     Route: 048
     Dates: start: 20070201
  4. FLAVONOID [Concomitant]
     Indication: OEDEMA PERIPHERAL
     Route: 048
     Dates: start: 20070101
  5. FUROSEMIDE [Concomitant]
     Indication: OEDEMA PERIPHERAL
     Route: 048
     Dates: start: 20070101

REACTIONS (9)
  - ABDOMINAL PAIN [None]
  - ANOREXIA [None]
  - DIZZINESS [None]
  - DRUG INTERACTION POTENTIATION [None]
  - FATIGUE [None]
  - HEADACHE [None]
  - HYPOGLYCAEMIA [None]
  - NAUSEA [None]
  - VOMITING [None]
